FAERS Safety Report 23059982 (Version 2)
Quarter: 2023Q4

REPORT INFORMATION
  Report Type: Spontaneous
  Country: US (occurrence: US)
  Receive Date: 20231012
  Receipt Date: 20231023
  Transmission Date: 20240110
  Serious: Yes (Hospitalization)
  Sender: FDA-Public Use
  Company Number: US-TEVA-2023-US-2933048

PATIENT
  Age: 75 Year
  Sex: Male

DRUGS (7)
  1. HYDROXYCHLOROQUINE [Suspect]
     Active Substance: HYDROXYCHLOROQUINE
     Indication: Drug therapy
     Dosage: DOSE: 80-120 MG
  2. FENBENDAZOLE [Suspect]
     Active Substance: FENBENDAZOLE
     Indication: Prostate cancer metastatic
     Route: 065
  3. IVERMECTIN [Suspect]
     Active Substance: IVERMECTIN
     Indication: Prostate cancer metastatic
     Dosage: DOSE: 80-120 MG
     Route: 065
  4. DIETARY SUPPLEMENT\HERBALS\MILK THISTLE [Concomitant]
     Active Substance: MILK THISTLE
     Indication: Prostate cancer metastatic
     Route: 065
  5. NETTLE [Concomitant]
     Active Substance: URTICA DIOICA POLLEN
     Indication: Prostate cancer metastatic
     Route: 065
  6. CAT^S CLAW [Concomitant]
     Active Substance: CAT^S CLAW
     Indication: Prostate cancer metastatic
     Route: 065
  7. Bloodroot [Concomitant]
     Indication: Prostate cancer metastatic
     Route: 065

REACTIONS (8)
  - Seizure [Recovering/Resolving]
  - Electrocardiogram QT prolonged [Recovering/Resolving]
  - Torsade de pointes [Recovered/Resolved]
  - Tachyarrhythmia [Recovering/Resolving]
  - Toxicity to various agents [Recovering/Resolving]
  - Accidental exposure to product [Unknown]
  - Intentional product misuse [Unknown]
  - Wrong product administered [Unknown]
